FAERS Safety Report 8817757 (Version 2)
Quarter: 2013Q2

REPORT INFORMATION
  Report Type: Spontaneous
  Country: US (occurrence: US)
  Receive Date: 20121001
  Receipt Date: 20130607
  Transmission Date: 20140414
  Serious: Yes (Other)
  Sender: FDA-Public Use
  Company Number: US-PFIZER INC-2012242004

PATIENT
  Sex: Male

DRUGS (17)
  1. LYRICA [Suspect]
     Indication: BACK PAIN
     Dosage: 300 MG, 2X/DAY
     Route: 048
  2. PROVENTIL INHALER [Concomitant]
  3. VENTOLIN [Concomitant]
  4. ASPIRIN ^BAYER^ [Concomitant]
  5. LIPITOR [Concomitant]
     Dosage: 20 MG, 1X/DAY
  6. KLONOPIN [Concomitant]
     Dosage: 1 MG, 3X/DAY
  7. ARICEPT [Concomitant]
     Dosage: 10 MG, 1X/DAY
  8. FLONASE [Concomitant]
  9. GLUCOTROL [Concomitant]
     Dosage: 5 MG, 2X/DAY
  10. LISINOPRIL [Concomitant]
     Dosage: 10 MG, 1X/DAY
  11. GLUCOPHAGE [Concomitant]
     Dosage: 500 MG, 2X/DAY
     Route: 048
  12. LOPRESSOR [Concomitant]
     Dosage: 25 MG, 2X/DAY
  13. NICODERM CQ [Concomitant]
  14. NITROSTAT [Concomitant]
     Indication: CHEST PAIN
  15. ROXICODONE [Concomitant]
     Dosage: 30 MG, 3X/DAY
  16. SPIRIVA [Concomitant]
  17. DESYREL [Concomitant]
     Dosage: 100 MG, 1X/DAY

REACTIONS (1)
  - Dementia [Not Recovered/Not Resolved]
